FAERS Safety Report 5881235-8 (Version None)
Quarter: 2008Q3

REPORT INFORMATION
  Report Type: 
  Country: None (occurrence: None)
  Receive Date: 20080912
  Receipt Date: 20080624
  Transmission Date: 20090109
  Serious: No
  Sender: FDA-Public Use
  Company Number: US-ABBOTT-08P-163-0459457-00

PATIENT
  Sex: Female

DRUGS (4)
  1. HUMIRA [Suspect]
     Indication: RHEUMATOID ARTHRITIS
     Route: 050
     Dates: start: 20070701
  2. TYLOX [Concomitant]
     Indication: DRUG USE FOR UNKNOWN INDICATION
  3. UNKNOWN MEDICATION [Concomitant]
     Indication: BLOOD PRESSURE
  4. SERTRALINE [Concomitant]
     Indication: ANXIOLYTIC THERAPY

REACTIONS (2)
  - ACCIDENTAL EXPOSURE [None]
  - INJECTION SITE PAIN [None]
